FAERS Safety Report 5320319-X (Version None)
Quarter: 2007Q1

REPORT INFORMATION
  Report Type: 
  Country: None (occurrence: None)
  Receive Date: 20070215
  Receipt Date: 20061116
  Transmission Date: 20070707
  Serious: Yes (Death, Hospitalization)
  Sender: FDA-Public Use
  Company Number: MC200600757

PATIENT
  Age: 66 Year
  Sex: Male

DRUGS (3)
  1. ANGIOMAX [Suspect]
     Indication: PERCUTANEOUS CORONARY INTERVENTION
     Dates: start: 20060101, end: 20060101
  2. ASPIRIN [Concomitant]
  3. CLOPIDOGREL [Concomitant]

REACTIONS (1)
  - HAEMORRHAGE INTRACRANIAL [None]
